APPROVED DRUG PRODUCT: CLEMASTINE FUMARATE
Active Ingredient: CLEMASTINE FUMARATE
Strength: EQ 0.5MG BASE/5ML
Dosage Form/Route: SYRUP;ORAL
Application: A074884 | Product #001 | TE Code: AA
Applicant: NEW HEIGHTSRX LLC
Approved: Dec 17, 1997 | RLD: No | RS: No | Type: RX